FAERS Safety Report 14564866 (Version 2)
Quarter: 2018Q1

REPORT INFORMATION
  Report Type: Spontaneous
  Country: BE (occurrence: BE)
  Receive Date: 20180223
  Receipt Date: 20180228
  Transmission Date: 20180509
  Serious: Yes (Life-Threatening, Hospitalization, Disabling, Other)
  Sender: FDA-Public Use
  Company Number: BE-009507513-1801BEL001440

PATIENT
  Sex: Female
  Weight: 48 kg

DRUGS (4)
  1. ALDACTONE [Concomitant]
     Active Substance: SPIRONOLACTONE
     Indication: ASCITES
     Dosage: 25 MG, UNK
     Route: 048
     Dates: start: 20171201
  2. OMEPRAZOLE. [Concomitant]
     Active Substance: OMEPRAZOLE
     Indication: GASTRITIS
     Dosage: 40 MG, UNK
     Route: 048
     Dates: start: 20171211
  3. KEYTRUDA [Suspect]
     Active Substance: PEMBROLIZUMAB
     Indication: NON-SMALL CELL LUNG CANCER
     Dosage: 200 MG, Q3W
     Dates: start: 20171221, end: 20171225
  4. BURINEX [Concomitant]
     Active Substance: BUMETANIDE
     Indication: ASCITES
     Dosage: 1 MG, UNK
     Route: 048
     Dates: start: 20171201

REACTIONS (5)
  - Stress cardiomyopathy [Recovering/Resolving]
  - Aphasia [Recovering/Resolving]
  - Hemiparesis [Recovering/Resolving]
  - Myocarditis [Recovering/Resolving]
  - Ischaemic stroke [Recovering/Resolving]

NARRATIVE: CASE EVENT DATE: 20171225
